FAERS Safety Report 6215695-X (Version None)
Quarter: 2009Q2

REPORT INFORMATION
  Report Type: 
  Country: None (occurrence: None)
  Receive Date: 20090603
  Receipt Date: 20090528
  Transmission Date: 20091009
  Serious: Yes (Hospitalization)
  Sender: FDA-Public Use
  Company Number: 2009006018

PATIENT
  Age: 39 Year
  Sex: Female
  Weight: 120 kg

DRUGS (2)
  1. ACTIQ [Suspect]
     Dosage: 4000 MCG (800 MCG, 5 IN 1 D), BU
     Route: 002
     Dates: start: 20080801
  2. MORPHINE SULFATE [Suspect]
     Dosage: 400 (200, 2 IN 1 D),
     Dates: start: 20080801

REACTIONS (2)
  - BACK PAIN [None]
  - DRUG DEPENDENCE [None]
